FAERS Safety Report 12644683 (Version 1)
Quarter: 2016Q3

REPORT INFORMATION
  Report Type: Spontaneous
  Country: RO (occurrence: RO)
  Receive Date: 20160811
  Receipt Date: 20160811
  Transmission Date: 20161109
  Serious: Yes (Death)
  Sender: FDA-Public Use
  Company Number: RO-OTSUKA-2016_019648

PATIENT
  Age: 68 Year
  Sex: Male
  Weight: 68 kg

DRUGS (5)
  1. ACICLOVIR [Concomitant]
     Active Substance: ACYCLOVIR
     Indication: PRODUCT USED FOR UNKNOWN INDICATION
     Dosage: 400 MG, 1 IN 12 HOUR
     Route: 065
     Dates: start: 20160420, end: 20160505
  2. MEROPENEM. [Concomitant]
     Active Substance: MEROPENEM
     Indication: ANTIBIOTIC THERAPY
     Dosage: 1 G, 1 IN 8 HOUR
     Route: 051
     Dates: start: 20160420, end: 20160505
  3. DACOGEN [Suspect]
     Active Substance: DECITABINE
     Indication: ACUTE MYELOID LEUKAEMIA
     Dosage: 32 MG, IN 1 DAY
     Route: 042
     Dates: start: 20160420, end: 20160424
  4. VANCOMYCIN HYDROCHLORIDE. [Concomitant]
     Active Substance: VANCOMYCIN HYDROCHLORIDE
     Indication: ANTIBIOTIC THERAPY
     Dosage: 1 G, 1 IN 12 HOUR
     Route: 065
     Dates: start: 20160421, end: 20160505
  5. METRONIDAZOLUM [Concomitant]
     Indication: ANTIBIOTIC THERAPY
     Dosage: 500 MG,1 IN 8 HOUR
     Route: 065
     Dates: start: 20160429, end: 20160505

REACTIONS (2)
  - Metabolic acidosis [Fatal]
  - Respiratory failure [Fatal]

NARRATIVE: CASE EVENT DATE: 20160504
